FAERS Safety Report 5739332-3 (Version None)
Quarter: 2008Q2

REPORT INFORMATION
  Report Type: 
  Country: None (occurrence: None)
  Receive Date: 20080515
  Receipt Date: 20080506
  Transmission Date: 20081010
  Serious: Yes (Other)
  Sender: FDA-Public Use
  Company Number: US-PFIZER INC-2008040024

PATIENT
  Sex: Female

DRUGS (2)
  1. CHANTIX [Suspect]
  2. ANTIDEPRESSANTS [Concomitant]
     Indication: DEPRESSION

REACTIONS (2)
  - DEPRESSION [None]
  - SUICIDAL IDEATION [None]
